FAERS Safety Report 7588476-2 (Version None)
Quarter: 2011Q3

REPORT INFORMATION
  Report Type: 
  Country: None (occurrence: None)
  Receive Date: 20110705
  Receipt Date: 20110628
  Transmission Date: 20111222
  Serious: Yes (Congenital Anomaly)
  Sender: FDA-Public Use
  Company Number: NL-PFIZER INC-2011144631

PATIENT
  Sex: Female
  Weight: 3 kg

DRUGS (1)
  1. SERTRALINE HYDROCHLORIDE [Suspect]
     Dosage: 100 MG, 1X/DAY
     Route: 064
     Dates: start: 20090101

REACTIONS (2)
  - MICROTIA [None]
  - MATERNAL EXPOSURE DURING PREGNANCY [None]
